FAERS Safety Report 4336988-7 (Version None)
Quarter: 2004Q2

REPORT INFORMATION
  Report Type: 
  Country: None (occurrence: None)
  Receive Date: 20040408
  Receipt Date: 20040326
  Transmission Date: 20050107
  Serious: Yes (Hospitalization)
  Sender: FDA-Public Use
  Company Number: CERZ-10515

PATIENT
  Age: 55 Year
  Sex: Female

DRUGS (1)
  1. CEREZYME [Suspect]
     Indication: GAUCHER'S DISEASE
     Dosage: 6000 UNITS Q2WKS IV
     Route: 042
     Dates: start: 20000201

REACTIONS (5)
  - ANGIOTENSIN CONVERTING ENZYME INCREASED [None]
  - BLOOD ACID PHOSPHATASE INCREASED [None]
  - BONE DISORDER [None]
  - HYPERPHAGIA [None]
  - WEIGHT INCREASED [None]
